FAERS Safety Report 4477888-1 (Version None)
Quarter: 2004Q4

REPORT INFORMATION
  Report Type: 
  Country: None (occurrence: None)
  Receive Date: 20041018
  Receipt Date: 20041010
  Transmission Date: 20050328
  Serious: Yes (Hospitalization)
  Sender: FDA-Public Use
  Company Number: CN-MERCK-0410CHN00018

PATIENT
  Age: 70 Year
  Sex: Male

DRUGS (1)
  1. VIOXX [Suspect]
     Indication: PYREXIA
     Route: 048
     Dates: start: 20020101

REACTIONS (1)
  - MYOCARDIAL INFARCTION [None]
